FAERS Safety Report 20781864 (Version 3)
Quarter: 2022Q3

REPORT INFORMATION
  Report Type: Other
  Country: IN (occurrence: None)
  Receive Date: 20220504
  Receipt Date: 20220907
  Transmission Date: 20221026
  Serious: Yes (Other)
  Sender: FDA-Public Use
  Company Number: IN-ROCHE-2869072

PATIENT
  Age: 60 Year
  Sex: Female

DRUGS (1)
  1. PERJETA [Suspect]
     Active Substance: PERTUZUMAB
     Indication: Breast cancer metastatic
     Dosage: PRODUCTS DOSAGE FORM WAS INJECTION
     Route: 042
     Dates: start: 20210317

REACTIONS (4)
  - Impaired healing [Unknown]
  - Pain [Unknown]
  - Breast mass [Unknown]
  - Schizophrenia [Unknown]

NARRATIVE: CASE EVENT DATE: 20220723
